FAERS Safety Report 6005707-0 (Version None)
Quarter: 2008Q4

REPORT INFORMATION
  Report Type: 
  Country: None (occurrence: None)
  Receive Date: 20081215
  Receipt Date: 20081127
  Transmission Date: 20090506
  Serious: Yes (Other)
  Sender: FDA-Public Use
  Company Number: 20666

PATIENT
  Age: 57 Year
  Sex: Female

DRUGS (4)
  1. ERYTHROMYCIN [Suspect]
     Indication: DECUBITUS ULCER
  2. CEFUROXIME [Suspect]
     Indication: DECUBITUS ULCER
  3. FLOXACILLIN SODIUM [Suspect]
     Indication: DECUBITUS ULCER
  4. METRONIDAZOLE [Concomitant]

REACTIONS (6)
  - BLOOD ALBUMIN DECREASED [None]
  - BLOOD CULTURE POSITIVE [None]
  - CLOSTRIDIUM DIFFICILE COLITIS [None]
  - ENTEROCOLITIS INFECTIOUS [None]
  - KLEBSIELLA INFECTION [None]
  - PSEUDOPOLYP [None]
